FAERS Safety Report 9163343 (Version 2)
Quarter: 2013Q2

REPORT INFORMATION
  Report Type: Spontaneous
  Country: FR (occurrence: None)
  Receive Date: 20130221
  Receipt Date: 20130603
  Transmission Date: 20140414
  Serious: Yes (Other)
  Sender: FDA-Public Use
  Company Number: HRA-CDB20130014

PATIENT
  Sex: Female

DRUGS (1)
  1. ELLAONE [Suspect]
     Indication: POST COITAL CONTRACEPTION
     Dates: start: 20130118, end: 20130118

REACTIONS (2)
  - Unintended pregnancy [None]
  - Exposure during pregnancy [None]
